FAERS Safety Report 25205132 (Version 4)
Quarter: 2025Q4

REPORT INFORMATION
  Report Type: Report from Study
  Country: US (occurrence: US)
  Receive Date: 20250416
  Receipt Date: 20251026
  Transmission Date: 20260119
  Serious: Yes (Other)
  Sender: ABBVIE
  Company Number: US-ABBVIE-6227858

PATIENT
  Age: 73 Year
  Sex: Female

DRUGS (3)
  1. SKYRIZI [Suspect]
     Active Substance: RISANKIZUMAB-RZAA
     Indication: Psoriatic arthropathy
     Route: 058
     Dates: start: 20230328
  2. SKYRIZI [Suspect]
     Active Substance: RISANKIZUMAB-RZAA
     Route: 058
     Dates: start: 20241211
  3. SKYRIZI [Suspect]
     Active Substance: RISANKIZUMAB-RZAA
     Route: 058
     Dates: start: 2025

REACTIONS (13)
  - Angioplasty [Recovering/Resolving]
  - Weight decreased [Recovering/Resolving]
  - Shoulder operation [Recovering/Resolving]
  - Spinal operation [Recovering/Resolving]
  - Limb injury [Recovering/Resolving]
  - Psoriasis [Unknown]
  - Ulcer [Unknown]
  - Unevaluable event [Unknown]
  - Spinal operation [Recovering/Resolving]
  - Drug ineffective [Not Recovered/Not Resolved]
  - Dry skin [Unknown]
  - Intracranial aneurysm [Unknown]
  - Brain fog [Unknown]

NARRATIVE: CASE EVENT DATE: 20250301
